FAERS Safety Report 5033480-1 (Version None)
Quarter: 2006Q2

REPORT INFORMATION
  Report Type: 
  Country: None (occurrence: None)
  Receive Date: 20060623
  Receipt Date: 20060328
  Transmission Date: 20061013
  Serious: Yes (Death, Life-Threatening, Hospitalization, Disabling)
  Sender: FDA-Public Use
  Company Number: 2006UW05460

PATIENT
  Sex: Female
  Weight: 150 kg

DRUGS (62)
  1. SEROQUEL [Suspect]
     Indication: BIPOLAR II DISORDER
     Route: 048
     Dates: start: 20001201
  2. SEROQUEL [Suspect]
     Indication: INSOMNIA
     Route: 048
     Dates: start: 20001201
  3. SEROQUEL [Suspect]
     Route: 048
     Dates: start: 20010109
  4. SEROQUEL [Suspect]
     Route: 048
     Dates: start: 20010109
  5. SEROQUEL [Suspect]
     Dosage: 300-400 MG
     Route: 048
     Dates: start: 20010307
  6. SEROQUEL [Suspect]
     Dosage: 300-400 MG
     Route: 048
     Dates: start: 20010307
  7. SEROQUEL [Suspect]
     Dosage: 800-1000 MG
     Route: 048
     Dates: start: 20010529
  8. SEROQUEL [Suspect]
     Dosage: 800-1000 MG
     Route: 048
     Dates: start: 20010529
  9. SEROQUEL [Suspect]
     Route: 048
     Dates: start: 20010607
  10. SEROQUEL [Suspect]
     Route: 048
     Dates: start: 20010607
  11. SEROQUEL [Suspect]
     Route: 048
     Dates: start: 20020221
  12. SEROQUEL [Suspect]
     Route: 048
     Dates: start: 20020221
  13. SEROQUEL [Suspect]
     Route: 048
     Dates: start: 20020709, end: 20020911
  14. SEROQUEL [Suspect]
     Route: 048
     Dates: start: 20020709, end: 20020911
  15. SEROQUEL [Suspect]
     Dosage: 300-275 MG
     Route: 048
     Dates: start: 20030211
  16. SEROQUEL [Suspect]
     Dosage: 300-275 MG
     Route: 048
     Dates: start: 20030211
  17. SEROQUEL [Suspect]
     Route: 048
     Dates: start: 20030313
  18. SEROQUEL [Suspect]
     Route: 048
     Dates: start: 20030313
  19. SEROQUEL [Suspect]
     Dosage: 150-200 MG
     Route: 048
     Dates: start: 20030415
  20. SEROQUEL [Suspect]
     Dosage: 150-200 MG
     Route: 048
     Dates: start: 20030415
  21. SEROQUEL [Suspect]
     Route: 048
     Dates: start: 20030604
  22. SEROQUEL [Suspect]
     Route: 048
     Dates: start: 20030604
  23. ALLOPURINOL [Concomitant]
     Dates: start: 19981201
  24. AMBIEN [Concomitant]
     Dosage: 2-4 MG
     Dates: start: 19981201
  25. AMITRIPTYLINE HCL [Concomitant]
     Dates: start: 19981201
  26. INSULIN [Concomitant]
     Dates: start: 19981201
  27. LANOXIN [Concomitant]
     Dates: start: 19981201
  28. LASIX [Concomitant]
     Dates: start: 19981201
  29. LIPITOR [Concomitant]
     Dates: start: 19981201
  30. PREMARIN [Concomitant]
     Dates: start: 19981201
  31. PRINIVIL [Concomitant]
     Dates: start: 19981201
  32. PRINIVIL [Concomitant]
     Dates: start: 20010619
  33. PROVERA [Concomitant]
     Dates: start: 19981201
  34. PROVERA [Concomitant]
     Dates: start: 20010619
  35. BUSPAR [Concomitant]
     Dates: start: 19981201
  36. BUSPAR [Concomitant]
     Dates: start: 20010619
  37. BUSPAR [Concomitant]
     Dates: start: 20020301
  38. SYNTHROID [Concomitant]
     Dates: start: 19981201
  39. BUSPIRONE HCL [Concomitant]
  40. BUSPIRONE HCL [Concomitant]
  41. CLONAZEPAM [Concomitant]
     Dates: end: 20030211
  42. DOXEPIN [Concomitant]
  43. GABAPENTIN [Concomitant]
  44. VALPROIC ACID [Concomitant]
  45. COUMADIN [Concomitant]
     Dates: start: 19981201, end: 20020301
  46. NITROFURANTOIN [Concomitant]
     Dates: start: 20010619
  47. QUININE SULFATE [Concomitant]
     Dates: start: 20010619
  48. QUININE SULFATE [Concomitant]
     Dates: start: 20020301
  49. TRAZODONE HCL [Concomitant]
     Dates: start: 20010619
  50. ZAROXOLYN [Concomitant]
     Dates: start: 20010619
  51. REGLAN [Concomitant]
     Dates: start: 20010619
  52. REGLAN [Concomitant]
     Dates: start: 20020301
  53. VIOXX [Concomitant]
  54. TOPROL-XL [Concomitant]
     Route: 048
     Dates: start: 20020301
  55. RITALIN [Concomitant]
     Dates: start: 20020301
  56. RITALIN [Concomitant]
     Dates: start: 20010815, end: 20010901
  57. RITALIN [Concomitant]
     Dates: start: 20010927
  58. PREVACID [Concomitant]
  59. PROVIGIL [Concomitant]
     Dates: start: 20020221, end: 20020201
  60. PROVIGIL [Concomitant]
     Dates: start: 20020301, end: 20020701
  61. PROVIGIL [Concomitant]
     Dates: start: 20020709
  62. GEODON [Concomitant]
     Dosage: 20-60 MG
     Dates: start: 20030313, end: 20030415

REACTIONS (2)
  - CARDIAC FAILURE CONGESTIVE [None]
  - WEIGHT INCREASED [None]
